FAERS Safety Report 9666338 (Version 1)
Quarter: 2013Q4

REPORT INFORMATION
  Report Type: Spontaneous
  Country: RU (occurrence: RU)
  Receive Date: 20131104
  Receipt Date: 20131104
  Transmission Date: 20140711
  Serious: Yes (Death)
  Sender: FDA-Public Use
  Company Number: RU-ASTRAZENECA-2013SE80703

PATIENT
  Age: 42 Year
  Sex: Male
  Weight: 90 kg

DRUGS (6)
  1. BRILINTA [Suspect]
     Indication: ACUTE MYOCARDIAL INFARCTION
     Route: 048
     Dates: start: 20130517, end: 20130517
  2. HEPARIN [Concomitant]
     Route: 041
  3. OMEZ (OMEPRAZOLE) [Concomitant]
     Route: 048
  4. ATORVASTATIN [Concomitant]
     Route: 048
  5. SIBAZON (DIAZEPAM) [Concomitant]
     Route: 030
  6. ASPIRIN [Concomitant]
     Route: 048

REACTIONS (1)
  - Death [Fatal]
